FAERS Safety Report 5018431-8 (Version None)
Quarter: 2006Q2

REPORT INFORMATION
  Report Type: 
  Country: None (occurrence: None)
  Receive Date: 20060605
  Receipt Date: 20060531
  Transmission Date: 20061013
  Serious: Yes (Disabling)
  Sender: FDA-Public Use
  Company Number: GB-BRISTOL-MYERS SQUIBB COMPANY-13394929

PATIENT
  Age: 45 Year
  Sex: Female
  Weight: 64 kg

DRUGS (6)
  1. CYCLOPHOSPHAMIDE [Suspect]
     Indication: BREAST CANCER
  2. PACLITAXEL [Suspect]
     Indication: BREAST CANCER
     Route: 042
     Dates: start: 20060310, end: 20060310
  3. EPIRUBICIN [Suspect]
     Indication: BREAST CANCER
  4. GEMCITABINE [Suspect]
     Indication: BREAST CANCER
     Dates: start: 20060310, end: 20060310
  5. CIPROFLOXACIN [Concomitant]
     Indication: ANTI-INFECTIVE THERAPY
     Route: 048
     Dates: start: 20060317, end: 20060324
  6. FLUCONAZOLE [Concomitant]
     Indication: LOCAL ANTIFUNGAL TREATMENT
     Route: 048
     Dates: start: 20060317, end: 20060324

REACTIONS (2)
  - EYE PAIN [None]
  - VISUAL DISTURBANCE [None]
